FAERS Safety Report 25661095 (Version 3)
Quarter: 2025Q3

REPORT INFORMATION
  Report Type: Spontaneous
  Country: BR (occurrence: BR)
  Receive Date: 20250808
  Receipt Date: 20250908
  Transmission Date: 20251021
  Serious: Yes (Hospitalization, Other)
  Sender: BIOMARIN
  Company Number: BR-BIOMARINAP-BR-2025-167931

PATIENT
  Age: 5 Year
  Sex: Male

DRUGS (1)
  1. VIMIZIM [Suspect]
     Active Substance: ELOSULFASE ALFA
     Indication: Mucopolysaccharidosis IV

REACTIONS (5)
  - Craniocerebral injury [Not Recovered/Not Resolved]
  - Fall [Unknown]
  - Seizure [Not Recovered/Not Resolved]
  - Postictal state [Not Recovered/Not Resolved]
  - Mobility decreased [Not Recovered/Not Resolved]

NARRATIVE: CASE EVENT DATE: 20250729
